FAERS Safety Report 24830654 (Version 1)
Quarter: 2025Q1

REPORT INFORMATION
  Report Type: Spontaneous
  Country: US (occurrence: US)
  Receive Date: 20250110
  Receipt Date: 20250110
  Transmission Date: 20250409
  Serious: Yes (Hospitalization, Other)
  Sender: RANBAXY
  Company Number: US-SUN PHARMACEUTICAL INDUSTRIES LTD-2024R1-488394

PATIENT
  Age: 83 Year
  Sex: Male

DRUGS (1)
  1. OCTREOTIDE [Suspect]
     Active Substance: OCTREOTIDE
     Indication: Malformation venous
     Route: 065

REACTIONS (3)
  - Therapy non-responder [Unknown]
  - Malformation venous [Unknown]
  - Gastrointestinal haemorrhage [Unknown]
